FAERS Safety Report 6762583-6 (Version None)
Quarter: 2010Q2

REPORT INFORMATION
  Report Type: 
  Country: None (occurrence: None)
  Receive Date: 20100609
  Receipt Date: 20100528
  Transmission Date: 20101027
  Serious: Yes (Other)
  Sender: FDA-Public Use
  Company Number: FR-PFIZER INC-2010053459

PATIENT
  Age: 33 Year
  Sex: Male
  Weight: 80 kg

DRUGS (3)
  1. LYRICA [Suspect]
     Indication: NEURALGIA
     Dosage: 25 MG, 2X/DAY
     Route: 048
     Dates: start: 20100424, end: 20100426
  2. TETRAZEPAM [Concomitant]
     Indication: MUSCLE RELAXANT THERAPY
     Dosage: 50 (UNITS UNKNOWN), 1X/DAY
     Route: 048
     Dates: start: 20100424
  3. IXPRIM [Concomitant]
     Indication: ANALGESIC THERAPY
     Dosage: UNK
     Route: 048
     Dates: start: 20100424

REACTIONS (3)
  - HEADACHE [None]
  - HYPERTENSION [None]
  - VERTIGO [None]
